FAERS Safety Report 4310884-3 (Version None)
Quarter: 2004Q1

REPORT INFORMATION
  Report Type: 
  Country: None (occurrence: None)
  Receive Date: 20040302
  Receipt Date: 20040218
  Transmission Date: 20041129
  Serious: Yes (Hospitalization)
  Sender: FDA-Public Use
  Company Number: 2004010543

PATIENT
  Age: 62 Year
  Sex: Male

DRUGS (1)
  1. CARDURA XL [Suspect]
     Indication: BENIGN PROSTATIC HYPERPLASIA
     Dosage: 4 MG, (DAILY), ORAL
     Route: 048
     Dates: start: 20031008, end: 20040121

REACTIONS (1)
  - TRANSURETHRAL PROSTATECTOMY [None]
